FAERS Safety Report 18492939 (Version 3)
Quarter: 2021Q3

REPORT INFORMATION
  Report Type: Report from Study
  Country: US (occurrence: US)
  Receive Date: 20201111
  Receipt Date: 20210904
  Transmission Date: 20211014
  Serious: Yes (Hospitalization, Other)
  Sender: FDA-Public Use
  Company Number: US-TAKEDA-2020TUS045007

PATIENT
  Sex: Male
  Weight: 58.96 kg

DRUGS (31)
  1. DIPHENHYDRAMINE. [Concomitant]
     Active Substance: DIPHENHYDRAMINE
     Dosage: UNK
  2. HYDROCORTISONE. [Concomitant]
     Active Substance: HYDROCORTISONE
     Dosage: UNK
  3. GABAPENTIN. [Concomitant]
     Active Substance: GABAPENTIN
     Dosage: UNK
  4. PROTONIX [OMEPRAZOLE] [Concomitant]
     Active Substance: OMEPRAZOLE
     Dosage: UNK
  5. CORTEF [Concomitant]
     Active Substance: HYDROCORTISONE
     Dosage: UNK
  6. ELIQUIS [Concomitant]
     Active Substance: APIXABAN
     Dosage: UNK
  7. PERCOCET [OXYCODONE HYDROCHLORIDE;OXYCODONE TEREPHTHALATE;PARACETAMOL] [Concomitant]
     Active Substance: ACETAMINOPHEN\OXYCODONE HYDROCHLORIDE\OXYCODONE TEREPHTHALATE
     Dosage: UNK
  8. DEPAKOTE [Concomitant]
     Active Substance: DIVALPROEX SODIUM
     Dosage: UNK
  9. ALBUTEROL [SALBUTAMOL] [Concomitant]
     Active Substance: ALBUTEROL
     Dosage: UNK
  10. BOTOX [Concomitant]
     Active Substance: ONABOTULINUMTOXINA
     Dosage: UNK
  11. EPINEPHRINE. [Concomitant]
     Active Substance: EPINEPHRINE
     Dosage: UNK
  12. FLORASTOR [LACTOBACILLUS ACIDOPHILUS] [Concomitant]
     Dosage: UNK
  13. FOSAMAX [Concomitant]
     Active Substance: ALENDRONATE SODIUM
     Dosage: UNK
  14. HUMAN NORMAL IMMUNOGLOBULIN; LIQUID [Suspect]
     Active Substance: HUMAN IMMUNOGLOBULIN G
     Indication: SELECTIVE IGG SUBCLASS DEFICIENCY
     Dosage: 5 GRAM, 1/WEEK
     Route: 058
     Dates: start: 20180404
  15. FAMOTIDINE. [Concomitant]
     Active Substance: FAMOTIDINE
     Dosage: UNK
  16. PREDNISONE. [Concomitant]
     Active Substance: PREDNISONE
     Dosage: UNK
  17. VITAMINS NOS [Concomitant]
     Active Substance: VITAMINS
     Dosage: UNK
  18. OXYGEN. [Concomitant]
     Active Substance: OXYGEN
     Dosage: UNK
  19. CARAFATE [Concomitant]
     Active Substance: SUCRALFATE
     Dosage: UNK
  20. CYCLOBENZAPRINE. [Concomitant]
     Active Substance: CYCLOBENZAPRINE
     Dosage: UNK
  21. FLONASE [Concomitant]
     Active Substance: FLUTICASONE PROPIONATE
     Dosage: UNK
  22. OXYCODONE [Concomitant]
     Active Substance: OXYCODONE
     Dosage: UNK
  23. BUMETANIDE. [Concomitant]
     Active Substance: BUMETANIDE
     Dosage: UNK
  24. LOPERAMIDE [Concomitant]
     Active Substance: LOPERAMIDE
     Dosage: UNK
  25. ESCITALOPRAM OXALATE. [Concomitant]
     Active Substance: ESCITALOPRAM OXALATE
     Dosage: UNK
  26. SYNTHROID [Concomitant]
     Active Substance: LEVOTHYROXINE SODIUM
     Dosage: UNK
  27. FLOMAX [MORNIFLUMATE] [Concomitant]
     Active Substance: MORNIFLUMATE
     Dosage: UNK
  28. SYMBICORT [Concomitant]
     Active Substance: BUDESONIDE\FORMOTEROL FUMARATE DIHYDRATE
     Dosage: UNK
  29. ACETAMINOPHEN. [Concomitant]
     Active Substance: ACETAMINOPHEN
     Dosage: UNK
  30. XANAX [Concomitant]
     Active Substance: ALPRAZOLAM
     Dosage: UNK
  31. CELEBREX [Concomitant]
     Active Substance: CELECOXIB
     Dosage: UNK

REACTIONS (4)
  - Oesophageal dilatation [Unknown]
  - Oesophageal operation [Unknown]
  - Peripheral swelling [Unknown]
  - Weight increased [Unknown]
